FAERS Safety Report 8281068-1 (Version None)
Quarter: 2012Q2

REPORT INFORMATION
  Report Type: 
  Country: None (occurrence: None)
  Receive Date: 20120412
  Receipt Date: 20120330
  Transmission Date: 20120825
  Serious: Yes (Other)
  Sender: FDA-Public Use
  Company Number: US-MYLANLABS-2012S1007073

PATIENT
  Age: 89 Year
  Sex: Female

DRUGS (7)
  1. AZATHIOPRINE [Suspect]
     Indication: PEMPHIGOID
     Dosage: 50MG DAILY
     Route: 065
  2. ATENOLOL [Concomitant]
     Route: 065
  3. CLOBETASOL PROPIONATE [Concomitant]
     Route: 065
  4. PIOGLITAZONE [Concomitant]
     Route: 065
  5. LOVASTATIN [Concomitant]
     Route: 065
  6. METFORMIN HCL [Concomitant]
     Route: 065
  7. PREDNISONE TAB [Concomitant]
     Dosage: 20MG EVERY OTHER MORNING
     Route: 065

REACTIONS (1)
  - ACUTE FEBRILE NEUTROPHILIC DERMATOSIS [None]
